FAERS Safety Report 11179989 (Version 3)
Quarter: 2015Q3

REPORT INFORMATION
  Report Type: Spontaneous
  Country: US (occurrence: US)
  Receive Date: 20150611
  Receipt Date: 20150904
  Transmission Date: 20151125
  Serious: Yes (Other)
  Sender: FDA-Public Use
  Company Number: US-BAYER-2015-307502

PATIENT
  Age: 32 Year
  Sex: Female
  Weight: 82.54 kg

DRUGS (2)
  1. GADAVIST [Suspect]
     Active Substance: GADOBUTROL
     Indication: NUCLEAR MAGNETIC RESONANCE IMAGING
     Dosage: 8.5 ML, UNK
     Route: 042
     Dates: start: 20150601
  2. GADAVIST [Suspect]
     Active Substance: GADOBUTROL
     Indication: EPICONDYLITIS

REACTIONS (6)
  - Off label use [None]
  - Wheezing [Recovered/Resolved]
  - Respiratory distress [None]
  - Rhinorrhoea [Recovered/Resolved]
  - Chest discomfort [Recovered/Resolved]
  - Erythema [Recovered/Resolved]

NARRATIVE: CASE EVENT DATE: 20150601
